FAERS Safety Report 23134851 (Version 1)
Quarter: 2023Q4

REPORT INFORMATION
  Report Type: Spontaneous
  Country: US (occurrence: None)
  Receive Date: 20231031
  Receipt Date: 20231031
  Transmission Date: 20240109
  Serious: Yes (Other)
  Sender: FDA-Public Use
  Company Number: None

PATIENT
  Age: 16 Year
  Sex: Female
  Weight: 52.65 kg

DRUGS (1)
  1. PERMETHRIN [Suspect]
     Active Substance: PERMETHRIN
     Indication: Lice infestation
     Dosage: OTHER QUANTITY : 1 TUBE;?OTHER FREQUENCY : ONCE AND REPEAT;?
     Route: 061

REACTIONS (12)
  - Skin burning sensation [None]
  - Folliculitis [None]
  - Acne [None]
  - Scab [None]
  - Vomiting [None]
  - Diarrhoea [None]
  - Headache [None]
  - Influenza like illness [None]
  - Nasopharyngitis [None]
  - Loss of consciousness [None]
  - Musculoskeletal stiffness [None]
  - Joint stiffness [None]

NARRATIVE: CASE EVENT DATE: 20230923
